FAERS Safety Report 5175726-5 (Version None)
Quarter: 2006Q4

REPORT INFORMATION
  Report Type: 
  Country: None (occurrence: None)
  Receive Date: 20061212
  Receipt Date: 20061212
  Transmission Date: 20070319
  Serious: Yes (Hospitalization)
  Sender: FDA-Public Use
  Company Number: None

PATIENT
  Age: 63 Year
  Sex: Female
  Weight: 61.2 kg

DRUGS (11)
  1. FLEET PHOSPHO-SODA 45 ML [Suspect]
     Indication: COLONOSCOPY
     Dosage: 45 ML ONE-TIME DOSE PO
     Route: 048
  2. COZAAR [Concomitant]
  3. NORVASC [Concomitant]
  4. LIPITOR [Concomitant]
  5. HYDROCHLOROTHIAZIDE [Concomitant]
  6. ADVAIR DISKUS 250/50 [Concomitant]
  7. CLIMARA [Concomitant]
  8. CITRA-CAL [Concomitant]
  9. FLAXSEED OIL [Concomitant]
  10. ESTER-C [Concomitant]
  11. ALEVE [Concomitant]

REACTIONS (4)
  - NEPHRITIS INTERSTITIAL [None]
  - NEPHROCALCINOSIS [None]
  - RENAL FAILURE ACUTE [None]
  - RENAL FAILURE CHRONIC [None]
